FAERS Safety Report 9626464 (Version 4)
Quarter: 2013Q4

REPORT INFORMATION
  Report Type: Spontaneous
  Country: JP (occurrence: JP)
  Receive Date: 20131016
  Receipt Date: 20131209
  Transmission Date: 20140711
  Serious: Yes (Hospitalization)
  Sender: FDA-Public Use
  Company Number: JP-SA-2013SA103285

PATIENT
  Age: 73 Year
  Sex: Female

DRUGS (3)
  1. IRBETAN [Suspect]
     Indication: HYPERTENSION
     Route: 048
     Dates: end: 20130220
  2. NESINA [Suspect]
     Indication: TYPE 2 DIABETES MELLITUS
     Route: 048
     Dates: end: 20130220
  3. OXYCONTIN [Concomitant]
     Indication: CANCER PAIN
     Route: 048

REACTIONS (1)
  - Interstitial lung disease [Recovering/Resolving]
